FAERS Safety Report 13050019 (Version 2)
Quarter: 2016Q4

REPORT INFORMATION
  Report Type: Spontaneous
  Country: JP (occurrence: JP)
  Receive Date: 20161221
  Receipt Date: 20161228
  Transmission Date: 20170207
  Serious: Yes (Hospitalization)
  Sender: FDA-Public Use
  Company Number: JP-MALLINCKRODT-T201604169

PATIENT
  Age: 86 Year
  Sex: Female
  Weight: 38 kg

DRUGS (6)
  1. DAIKENCHUTO [Concomitant]
     Active Substance: HERBALS
     Dosage: 7.5 G
     Route: 048
     Dates: start: 20160821, end: 20160907
  2. MEROPEN [Suspect]
     Active Substance: MEROPENEM
     Indication: INFECTION PROPHYLAXIS
     Dosage: 1.5 G
     Route: 041
     Dates: start: 20160822, end: 20160824
  3. OFIRMEV [Suspect]
     Active Substance: ACETAMINOPHEN
     Indication: ANALGESIC THERAPY
     Dosage: 1000 MG (1/1 DAY)
     Route: 042
     Dates: start: 20160822, end: 20160824
  4. PANTOL [Concomitant]
     Active Substance: DEXPANTHENOL
     Dosage: 1500 MG
     Route: 042
     Dates: start: 20160820, end: 20160901
  5. GLORIAMIN [Concomitant]
     Dosage: 1.5 G
     Route: 048
     Dates: start: 20160821, end: 20160830
  6. BIOFERMIN R [Concomitant]
     Active Substance: BACILLUS SUBTILIS\LACTOBACILLUS ACIDOPHILUS\STREPTOCOCCUS FAECAIS
     Dosage: 3 G
     Route: 048
     Dates: start: 20160821, end: 20160830

REACTIONS (1)
  - Hepatic enzyme increased [Recovered/Resolved]

NARRATIVE: CASE EVENT DATE: 20160824
